FAERS Safety Report 18098717 (Version 1)
Quarter: 2020Q3

REPORT INFORMATION
  Report Type: Spontaneous
  Country: US (occurrence: US)
  Receive Date: 20200731
  Receipt Date: 20200731
  Transmission Date: 20201103
  Serious: Yes (Other)
  Sender: FDA-Public Use
  Company Number: US-SUNOVION-2020SUN002178

PATIENT

DRUGS (3)
  1. WELLBUTRIN [Suspect]
     Active Substance: BUPROPION HYDROCHLORIDE
  2. LATUDA [Suspect]
     Active Substance: LURASIDONE HYDROCHLORIDE
     Dosage: UNK
     Route: 048
  3. CYMBALTA [Suspect]
     Active Substance: DULOXETINE HYDROCHLORIDE

REACTIONS (8)
  - Hyperarousal [Unknown]
  - Anxiety [Unknown]
  - Suicidal ideation [Unknown]
  - Emotional poverty [Unknown]
  - Feeling abnormal [Unknown]
  - Depression [Unknown]
  - Insomnia [Unknown]
  - Akathisia [Unknown]
